FAERS Safety Report 7183691-4 (Version None)
Quarter: 2010Q4

REPORT INFORMATION
  Report Type: 
  Country: None (occurrence: None)
  Receive Date: 20101220
  Receipt Date: 20101220
  Transmission Date: 20110411
  Serious: Yes (Hospitalization)
  Sender: FDA-Public Use
  Company Number: None

PATIENT
  Age: 47 Year
  Sex: Female
  Weight: 76 kg

DRUGS (14)
  1. PHENERGAN W/ CODEINE [Suspect]
     Dosage: 5ML Q4HR PO RECENT
     Route: 048
  2. M.V.I. [Concomitant]
  3. LYRICA [Concomitant]
  4. ATENOLOL [Concomitant]
  5. CYMBALTA [Concomitant]
  6. TRICOR [Concomitant]
  7. ZOCOR [Concomitant]
  8. SEROQAUEL [Concomitant]
  9. LISINOPRIL [Concomitant]
  10. MOTRIN [Concomitant]
  11. GLYBURIDE [Concomitant]
  12. ACTOS [Concomitant]
  13. LAMOTRIGINE [Concomitant]
  14. * MULTIPLE ORDERS [Concomitant]

REACTIONS (4)
  - DEHYDRATION [None]
  - HYPONATRAEMIA [None]
  - MENTAL STATUS CHANGES [None]
  - RENAL FAILURE ACUTE [None]
